FAERS Safety Report 24209447 (Version 1)
Quarter: 2024Q3

REPORT INFORMATION
  Report Type: Spontaneous
  Country: GB (occurrence: GB)
  Receive Date: 20240814
  Receipt Date: 20240814
  Transmission Date: 20241017
  Serious: Yes (Other)
  Sender: RANBAXY
  Company Number: GB-SUN PHARMACEUTICAL INDUSTRIES LTD-2024RR-462505

PATIENT
  Age: 32 Year
  Sex: Female

DRUGS (3)
  1. ESOMEPRAZOLE [Suspect]
     Active Substance: ESOMEPRAZOLE
     Indication: Product used for unknown indication
     Dosage: 20 MILLIGRAM
     Route: 065
  2. MINERALS\VITAMINS [Concomitant]
     Active Substance: MINERALS\VITAMINS
     Indication: Product used for unknown indication
     Dosage: OTC SELF-CARE AGENDA WOULD SUPPORT PURCHASE OF ...
     Route: 065
     Dates: start: 20210419
  3. FERROUS FUMARATE [Concomitant]
     Active Substance: FERROUS FUMARATE
     Indication: Product used for unknown indication
     Dosage: 1 DOSAGE FORM, TID
     Route: 065
     Dates: start: 20210524

REACTIONS (3)
  - Pharyngeal swelling [Recovered/Resolved]
  - Anaphylactic reaction [Recovered/Resolved]
  - Swelling face [Recovered/Resolved]
